FAERS Safety Report 19737694 (Version 1)
Quarter: 2021Q3

REPORT INFORMATION
  Report Type: Report from Study
  Country: US (occurrence: US)
  Receive Date: 20210823
  Receipt Date: 20210823
  Transmission Date: 20211014
  Serious: Yes (Other)
  Sender: FDA-Public Use
  Company Number: US-MYLANLABS-2021M1054051

PATIENT
  Sex: Male
  Weight: 82 kg

DRUGS (1)
  1. AMNESTEEM [Suspect]
     Active Substance: ISOTRETINOIN
     Indication: ACNE
     Dosage: 40 MILLIGRAM
     Dates: start: 20210406, end: 20210810

REACTIONS (6)
  - Depression [Unknown]
  - Discomfort [Unknown]
  - Suicidal ideation [Unknown]
  - Anxiety [Unknown]
  - Weight decreased [Unknown]
  - Decreased interest [Unknown]

NARRATIVE: CASE EVENT DATE: 2021
